FAERS Safety Report 14759682 (Version 2)
Quarter: 2020Q2

REPORT INFORMATION
  Report Type: Spontaneous
  Country: US (occurrence: US)
  Receive Date: 20180413
  Receipt Date: 20200609
  Transmission Date: 20200713
  Serious: Yes (Death, Hospitalization, Other)
  Sender: FDA-Public Use
  Company Number: US-009507513-1804USA006022

PATIENT
  Sex: Female
  Weight: 60.32 kg

DRUGS (1)
  1. JANUVIA [Suspect]
     Active Substance: SITAGLIPTIN PHOSPHATE
     Indication: DIABETES MELLITUS
     Dosage: 100 MILLIGRAM, DAILY-AS PRESCRIBED
     Route: 048
     Dates: start: 20070926, end: 201306

REACTIONS (32)
  - Pancreatitis [Unknown]
  - Failure to thrive [Unknown]
  - Normocytic anaemia [Unknown]
  - Discomfort [Unknown]
  - Leukocytosis [Unknown]
  - Hypokalaemia [Unknown]
  - Systemic inflammatory response syndrome [Unknown]
  - Hypomagnesaemia [Unknown]
  - Emotional distress [Unknown]
  - Diarrhoea [Unknown]
  - Oesophageal obstruction [Unknown]
  - Metastases to liver [Unknown]
  - Pulmonary fibrosis [Unknown]
  - Obstruction gastric [Unknown]
  - Gastrooesophageal reflux disease [Unknown]
  - Renal cyst [Unknown]
  - Hyperglycaemia [Unknown]
  - Hyponatraemia [Unknown]
  - Dehydration [Unknown]
  - Hypoalbuminaemia [Unknown]
  - Malnutrition [Unknown]
  - Pancreatic carcinoma [Fatal]
  - Aortic arteriosclerosis [Unknown]
  - Hypophosphataemia [Unknown]
  - Pharyngo-oesophageal diverticulum [Recovered/Resolved]
  - Lymphadenopathy [Unknown]
  - Normochromic anaemia [Unknown]
  - Dyspnoea [Unknown]
  - Liver function test increased [Unknown]
  - Bile duct obstruction [Unknown]
  - Stress [Unknown]
  - Spinal osteoarthritis [Unknown]

NARRATIVE: CASE EVENT DATE: 201403
